FAERS Safety Report 13500023 (Version 1)
Quarter: 2017Q2

REPORT INFORMATION
  Report Type: Spontaneous
  Country: SE (occurrence: SE)
  Receive Date: 20170501
  Receipt Date: 20170501
  Transmission Date: 20170830
  Serious: Yes (Death)
  Sender: FDA-Public Use
  Company Number: SE-TEVA-762187ACC

PATIENT
  Age: 68 Year
  Sex: Male

DRUGS (8)
  1. OLANZAPINE ACTAVIS 2,5 MG FILMDRAGERAD TABLETT [Suspect]
     Active Substance: OLANZAPINE
     Indication: SCHIZOPHRENIA
     Dosage: 1-2 TABLETS WHEN NEEDED
     Dates: start: 20161014
  2. XERODENT 28,6 MG/0,25 MG SUGTABLETT [Concomitant]
  3. ZYPADHERA [Suspect]
     Active Substance: OLANZAPINE PAMOATE
     Indication: SCHIZOPHRENIA
     Dosage: ACCORDING TO SCHEDULE 1 INJECTION EVERY TWO WEEKS
     Route: 030
     Dates: start: 20160404
  4. OMEPRAZOL ACTAVIS 20 MG ENTEROKAPSEL, HARD [Concomitant]
     Active Substance: OMEPRAZOLE
  5. CITALOPRAM [Concomitant]
     Active Substance: CITALOPRAM HYDROBROMIDE
  6. SPIRIVA [Concomitant]
     Active Substance: TIOTROPIUM BROMIDE MONOHYDRATE
  7. COCILLANA-ETYFIN ORAL LOSNING [Concomitant]
     Dates: start: 20150803
  8. NITRAZEPAM RECIP 5 MG TABLETT [Concomitant]

REACTIONS (1)
  - Pulmonary embolism [Fatal]

NARRATIVE: CASE EVENT DATE: 20170206
